FAERS Safety Report 9697078 (Version 2)
Quarter: 2014Q2

REPORT INFORMATION
  Report Type: Spontaneous
  Country: JP (occurrence: JP)
  Receive Date: 20131120
  Receipt Date: 20140516
  Transmission Date: 20141212
  Serious: Yes (Hospitalization)
  Sender: FDA-Public Use
  Company Number: JP-MERCK-1311JPN007568

PATIENT
  Age: 77 Year
  Sex: Female

DRUGS (14)
  1. GLACTIV [Suspect]
     Indication: TYPE 2 DIABETES MELLITUS
     Dosage: DAILY DOSE 50 MG
     Route: 048
     Dates: start: 20120712, end: 20130801
  2. RECALBON [Suspect]
     Indication: OSTEOPOROSIS
     Dosage: 50 MG, ONCE EVERY 4 WEEKS
     Route: 048
     Dates: start: 20130606, end: 20130801
  3. PREDONINE [Suspect]
     Indication: RHEUMATOID ARTHRITIS
     Dosage: DAILY DOSE 3 MG
     Route: 048
     Dates: start: 20121004, end: 20130801
  4. PREDONINE [Suspect]
     Dosage: DAILY DOSE 2.5 MG
     Route: 048
     Dates: start: 20120609, end: 20121003
  5. STAYBLA [Concomitant]
     Dosage: UNK
     Dates: start: 20130404, end: 20130801
  6. NATRIX [Concomitant]
     Dosage: UNK
     Dates: start: 20120712, end: 20130801
  7. EDIROL [Concomitant]
     Dosage: UNK
     Dates: start: 20120809, end: 20130801
  8. OMEPRAL [Concomitant]
     Dosage: UNK
     Dates: start: 20120712, end: 20130801
  9. ANPLAG [Concomitant]
     Dosage: UNK
     Dates: start: 20120712, end: 20130801
  10. LYRICA [Concomitant]
     Dosage: UNK
     Dates: start: 20120712, end: 20130801
  11. MYSLEE [Concomitant]
     Dosage: UNK
     Dates: start: 20120712, end: 20130801
  12. EPADEL [Concomitant]
     Dosage: UNK
     Dates: start: 20120712, end: 20130801
  13. ALFAROL [Concomitant]
     Dosage: UNK
  14. FOSAMAC TABLETS-5 [Concomitant]
     Dosage: UNK

REACTIONS (1)
  - Gingival cancer [Not Recovered/Not Resolved]
